FAERS Safety Report 12226471 (Version 1)
Quarter: 2016Q1

REPORT INFORMATION
  Report Type: Spontaneous
  Country: US (occurrence: US)
  Receive Date: 20160331
  Receipt Date: 20160331
  Transmission Date: 20160526
  Serious: Yes (Hospitalization, Other)
  Sender: FDA-Public Use
  Company Number: US-FRI-1000083592

PATIENT
  Age: 84 Year
  Sex: Female

DRUGS (3)
  1. MIRALAX [Concomitant]
     Active Substance: POLYETHYLENE GLYCOL 3350
     Indication: CONSTIPATION
  2. DULCOLAX NOS [Concomitant]
     Active Substance: BISACODYL OR DOCUSATE SODIUM
     Indication: CONSTIPATION
  3. LINZESS [Suspect]
     Active Substance: LINACLOTIDE
     Indication: CONSTIPATION
     Dosage: 145 MICROGRAM
     Route: 048
     Dates: start: 2016

REACTIONS (9)
  - Fatigue [Recovering/Resolving]
  - Rales [Not Recovered/Not Resolved]
  - Hypertension [Recovered/Resolved]
  - Dyspnoea [Not Recovered/Not Resolved]
  - Pneumonia viral [Unknown]
  - Decreased appetite [Not Recovered/Not Resolved]
  - Heart rate increased [Recovered/Resolved]
  - Asthenia [Recovering/Resolving]
  - Pleural effusion [Not Recovered/Not Resolved]

NARRATIVE: CASE EVENT DATE: 2016
